FAERS Safety Report 17066836 (Version 1)
Quarter: 2019Q4

REPORT INFORMATION
  Report Type: Spontaneous
  Country: NL (occurrence: NL)
  Receive Date: 20191122
  Receipt Date: 20191122
  Transmission Date: 20200122
  Serious: Yes (Other)
  Sender: FDA-Public Use
  Company Number: NL-MYLANLABS-2019M1113260

PATIENT
  Age: 70 Year
  Sex: Female

DRUGS (1)
  1. CANDESARTAN. [Suspect]
     Active Substance: CANDESARTAN
     Indication: MIGRAINE
     Route: 065

REACTIONS (6)
  - Spinal osteoarthritis [Recovered/Resolved]
  - Musculoskeletal discomfort [Recovered/Resolved]
  - Brain injury [Unknown]
  - Drug ineffective for unapproved indication [Unknown]
  - Anosmia [Unknown]
  - Injury [Unknown]

NARRATIVE: CASE EVENT DATE: 2016
